FAERS Safety Report 4449121-8 (Version None)
Quarter: 2004Q3

REPORT INFORMATION
  Report Type: 
  Country: None (occurrence: None)
  Receive Date: 20040910
  Receipt Date: 20040825
  Transmission Date: 20050211
  Serious: Yes (Hospitalization)
  Sender: FDA-Public Use
  Company Number: 2004230236FR

PATIENT
  Age: 49 Year
  Sex: Female

DRUGS (21)
  1. SOLU-MEDROL [Suspect]
     Dosage: 120 MG, SINGLE, IV SEE IMAGE
     Route: 042
     Dates: start: 20040421, end: 20040421
  2. SOLU-MEDROL [Suspect]
     Dosage: 120 MG, SINGLE, IV SEE IMAGE
     Route: 042
     Dates: start: 20040512, end: 20040512
  3. SOLU-MEDROL [Suspect]
     Dosage: 120 MG, SINGLE, IV SEE IMAGE
     Route: 042
     Dates: start: 20040526, end: 20040526
  4. . [Concomitant]
  5. . [Concomitant]
  6. POLARAMINE [Suspect]
     Dosage: 5 MG, SINGLE, IV
     Route: 042
     Dates: start: 20040421, end: 20040421
  7. POLARAMINE [Suspect]
     Dosage: 5 MG, SINGLE, IV
     Route: 042
     Dates: start: 20040512, end: 20040512
  8. POLARAMINE [Suspect]
     Dosage: 5 MG, SINGLE, IV
     Route: 042
     Dates: start: 20040526, end: 20040526
  9. . [Concomitant]
  10. . [Concomitant]
  11. GRANISETRON  HCL [Suspect]
     Dosage: 3 MG, SINGLE, IV
     Route: 042
     Dates: start: 20040421, end: 20040421
  12. CARBOPLATIN [Suspect]
     Dosage: 3 MG, SINGLE, IV
     Route: 042
     Dates: start: 20040421, end: 20040421
  13. CARBOPLATIN [Suspect]
     Dosage: 3 MG, SINGLE, IV
     Route: 042
     Dates: start: 20040512, end: 20040512
  14. CARBOPLATIN [Suspect]
     Dosage: 3 MG, SINGLE, IV
     Route: 042
     Dates: start: 20040521, end: 20040521
  15. . [Concomitant]
  16. . [Concomitant]
  17. PACLITAXEL [Suspect]
     Dosage: SINGLE, IV
     Route: 042
     Dates: start: 20040421, end: 20040421
  18. PACLITAXEL [Suspect]
     Dosage: SINGLE, IV
     Route: 042
     Dates: start: 20040512, end: 20040512
  19. PACLITAXEL [Suspect]
     Dosage: SINGLE, IV
     Route: 042
     Dates: start: 20040521, end: 20040521
  20. . [Concomitant]
  21. . [Concomitant]

REACTIONS (1)
  - INTESTINAL OBSTRUCTION [None]
